FAERS Safety Report 24891817 (Version 3)
Quarter: 2025Q1

REPORT INFORMATION
  Report Type: Spontaneous
  Country: FR (occurrence: FR)
  Receive Date: 20250127
  Receipt Date: 20250327
  Transmission Date: 20250408
  Serious: Yes (Hospitalization, Other)
  Sender: JOHNSON AND JOHNSON
  Company Number: FR-JNJFOC-20250151515

PATIENT
  Sex: Male

DRUGS (2)
  1. CONCERTA [Suspect]
     Active Substance: METHYLPHENIDATE HYDROCHLORIDE
     Indication: Product used for unknown indication
     Dosage: INCREASED  THE  DOSE:  TO  108  THREE  TIMES  A  MONTH
     Route: 048
     Dates: start: 20220902
  2. CONCERTA [Suspect]
     Active Substance: METHYLPHENIDATE HYDROCHLORIDE
     Dosage: INITIAL  DOSE  90  THREE  TIMES/MONTH
     Route: 048

REACTIONS (6)
  - Coma [Unknown]
  - Poisoning [Unknown]
  - Insomnia [Unknown]
  - Hypothermia [Unknown]
  - Mania [Unknown]
  - Off label use [Unknown]
